FAERS Safety Report 14242123 (Version 1)
Quarter: 2017Q4

REPORT INFORMATION
  Report Type: Spontaneous
  Country: FR (occurrence: FR)
  Receive Date: 20171201
  Receipt Date: 20171201
  Transmission Date: 20180321
  Serious: Yes (Disabling)
  Sender: FDA-Public Use
  Company Number: FR-MERCK KGAA-2036449

PATIENT
  Age: 57 Year
  Sex: Female

DRUGS (1)
  1. NOVOTHYROX [Suspect]
     Active Substance: LEVOTHYROXINE SODIUM
     Indication: PRODUCT USED FOR UNKNOWN INDICATION
     Dates: start: 2017, end: 201709

REACTIONS (14)
  - Dyspnoea [None]
  - Palpitations [None]
  - Blood thyroid stimulating hormone decreased [None]
  - Fatigue [Not Recovered/Not Resolved]
  - Asthenia [None]
  - Vertigo [None]
  - Gait disturbance [None]
  - Dysstasia [None]
  - Headache [None]
  - Irritability [None]
  - Loss of personal independence in daily activities [None]
  - Somnolence [None]
  - Insomnia [None]
  - Depressed mood [None]

NARRATIVE: CASE EVENT DATE: 2017
